FAERS Safety Report 9174305 (Version 1)
Quarter: 2013Q1

REPORT INFORMATION
  Report Type: Spontaneous
  Country: AR (occurrence: AR)
  Receive Date: 20130320
  Receipt Date: 20130320
  Transmission Date: 20140127
  Serious: Yes (Hospitalization)
  Sender: FDA-Public Use
  Company Number: PHHY2013AR025954

PATIENT
  Sex: Male

DRUGS (3)
  1. GALVUS MET [Suspect]
     Indication: DIABETES MELLITUS
     Dosage: 1DF (1000 MG MET/ 50 MG VILD), UKN
     Route: 048
  2. DIOVAN [Suspect]
     Indication: HYPERTENSION
     Dosage: 320 MG, UNK
     Route: 048
  3. DIOVAN D [Suspect]
     Dosage: 1 DF (320 MG VAL/ 25 MG HCT), UKN

REACTIONS (1)
  - Blood glucose decreased [Recovering/Resolving]
